FAERS Safety Report 9115602 (Version 1)
Quarter: 2013Q1

REPORT INFORMATION
  Report Type: Spontaneous
  Country: DK (occurrence: None)
  Receive Date: 20130129
  Receipt Date: 20130129
  Transmission Date: 20140127
  Serious: Yes (Other)
  Sender: FDA-Public Use
  Company Number: 2013MA000721

PATIENT
  Age: 74 Year
  Sex: Female

DRUGS (3)
  1. DOXAZOSIN MESYLATE [Suspect]
     Indication: HYPERTENSION
     Route: 048
     Dates: start: 201103
  2. RAMIPRIL [Concomitant]
  3. BENDROFLUAZIDE [Concomitant]

REACTIONS (2)
  - Urinary tract infection [None]
  - Cystitis [None]
